FAERS Safety Report 18336037 (Version 1)
Quarter: 2020Q4

REPORT INFORMATION
  Report Type: Spontaneous
  Country: US (occurrence: US)
  Receive Date: 20201001
  Receipt Date: 20201001
  Transmission Date: 20210113
  Serious: No
  Sender: FDA-Public Use
  Company Number: US-SA-2020SA265931

PATIENT

DRUGS (4)
  1. GABAPENTIN. [Concomitant]
     Active Substance: GABAPENTIN
  2. AUBAGIO [Suspect]
     Active Substance: TERIFLUNOMIDE
     Indication: MULTIPLE SCLEROSIS
  3. OCREVUS [Concomitant]
     Active Substance: OCRELIZUMAB
  4. NORCO [Concomitant]
     Active Substance: ACETAMINOPHEN\HYDROCODONE BITARTRATE

REACTIONS (7)
  - Drug ineffective [Unknown]
  - Vocal cord dysfunction [Unknown]
  - Pain in extremity [Unknown]
  - Blood immunoglobulin E increased [Unknown]
  - Dyspnoea exertional [Unknown]
  - Dysphonia [Unknown]
  - Localised infection [Unknown]
